FAERS Safety Report 10940432 (Version 2)
Quarter: 2015Q2

REPORT INFORMATION
  Report Type: Spontaneous
  Country: US (occurrence: US)
  Receive Date: 20150322
  Receipt Date: 20150524
  Transmission Date: 20150821
  Serious: Yes (Hospitalization)
  Sender: FDA-Public Use
  Company Number: US-JNJFOC-20150208483

PATIENT
  Age: 63 Year
  Sex: Male

DRUGS (5)
  1. ABCIXIMAB [Suspect]
     Active Substance: ABCIXIMAB
     Indication: PERCUTANEOUS CORONARY INTERVENTION
     Route: 042
  2. UNFRACTIONATED HEPARIN [Suspect]
     Active Substance: HEPARIN SODIUM
     Indication: PRODUCT USED FOR UNKNOWN INDICATION
     Dosage: LOADING-DOSE OF INTRAVENOUS??UNFRACTIONATED HEPARIN
     Route: 042
  3. CLOPIDOGREL [Suspect]
     Active Substance: CLOPIDOGREL BISULFATE
     Indication: ANTIPLATELET THERAPY
     Route: 065
  4. ASPIRIN. [Suspect]
     Active Substance: ASPIRIN
     Indication: ANTIPLATELET THERAPY
     Route: 065
  5. ABCIXIMAB [Suspect]
     Active Substance: ABCIXIMAB
     Indication: ANTIPLATELET THERAPY
     Route: 042

REACTIONS (1)
  - Thrombocytopenia [Recovered/Resolved]
